FAERS Safety Report 20689677 (Version 1)
Quarter: 2022Q2

REPORT INFORMATION
  Report Type: Spontaneous
  Country: US (occurrence: None)
  Receive Date: 20220407
  Receipt Date: 20220407
  Transmission Date: 20220720
  Serious: No
  Sender: FDA-Public Use
  Company Number: None

PATIENT
  Sex: Male

DRUGS (2)
  1. TESTOSTERONE CYPIONATE [Suspect]
     Active Substance: TESTOSTERONE CYPIONATE
     Indication: Hormone replacement therapy
     Dosage: OTHER FREQUENCY : ONCE WEEKLY;?
     Route: 030
     Dates: start: 20211129
  2. Gonadorelin 0.2mg/ml [Concomitant]
     Dates: start: 20211129

REACTIONS (4)
  - Injection site mass [None]
  - Dizziness [None]
  - Balance disorder [None]
  - Product quality issue [None]
